FAERS Safety Report 8770088 (Version 1)
Quarter: 2012Q4

REPORT INFORMATION
  Report Type: Report from Study
  Country: CA (occurrence: CA)
  Receive Date: 20120906
  Receipt Date: 20120906
  Transmission Date: 20130627
  Serious: Yes (Hospitalization)
  Sender: FDA-Public Use
  Company Number: CA-JNJFOC-20120812831

PATIENT

DRUGS (2)
  1. REMICADE [Suspect]
     Indication: PRODUCT USED FOR UNKNOWN INDICATION
     Route: 042
  2. ALL OTHER THERAPEUTIC PRODUCT [Suspect]
     Indication: ANXIETY
     Route: 065

REACTIONS (2)
  - Confusional state [Unknown]
  - Anxiety [Unknown]
